FAERS Safety Report 5816052-8 (Version None)
Quarter: 2008Q3

REPORT INFORMATION
  Report Type: 
  Country: None (occurrence: None)
  Receive Date: 20080721
  Receipt Date: 20080709
  Transmission Date: 20090109
  Serious: Yes (Death, Other)
  Sender: FDA-Public Use
  Company Number: MX-ELI_LILLY_AND_COMPANY-MX200805006100

PATIENT
  Age: 29 Year
  Sex: Female
  Weight: 150 kg

DRUGS (2)
  1. XIGRIS [Suspect]
     Indication: ABDOMINAL SEPSIS
     Route: 042
     Dates: start: 20080523
  2. XIGRIS [Suspect]
     Route: 042
     Dates: start: 20080526

REACTIONS (6)
  - BRONCHIAL HAEMORRHAGE [None]
  - EPISTAXIS [None]
  - GASTROINTESTINAL HAEMORRHAGE [None]
  - GENITAL HAEMORRHAGE [None]
  - MULTI-ORGAN FAILURE [None]
  - URINARY BLADDER HAEMORRHAGE [None]
